FAERS Safety Report 5266832-5 (Version None)
Quarter: 2007Q1

REPORT INFORMATION
  Report Type: 
  Country: None (occurrence: None)
  Receive Date: 20061213
  Receipt Date: 20040707
  Transmission Date: 20070707
  Serious: No
  Sender: FDA-Public Use
  Company Number: 2004UW14034

PATIENT
  Age: 84 Year
  Sex: Female
  Weight: 56.6996 kg

DRUGS (8)
  1. TAMOXIFEN CITRATE [Suspect]
     Indication: BREAST CANCER
  2. LOPRESSOR [Concomitant]
  3. DIOVAN [Concomitant]
  4. DETROL [Concomitant]
  5. ALLEGRA [Concomitant]
  6. POTASSIUM ACETATE [Concomitant]
  7. ASPIRIN [Concomitant]
  8. VITAMINS [Concomitant]

REACTIONS (1)
  - THROMBOSIS [None]
